FAERS Safety Report 9922048 (Version 1)
Quarter: 2014Q1

REPORT INFORMATION
  Report Type: Spontaneous
  Country: US (occurrence: None)
  Receive Date: 20140221
  Receipt Date: 20140221
  Transmission Date: 20141002
  Serious: Yes (Disabling)
  Sender: FDA-Public Use
  Company Number: None

PATIENT
  Age: 58 Year
  Sex: Female
  Weight: 56.7 kg

DRUGS (7)
  1. BONIVA [Suspect]
     Indication: OSTEOPOROSIS
     Route: 048
     Dates: start: 2005, end: 2010
  2. DOXEPIN [Concomitant]
  3. ZETIA [Concomitant]
  4. CALCIUM [Concomitant]
  5. MAGENSIUM [Concomitant]
  6. D3 [Concomitant]
  7. FLAXSEED OIL [Concomitant]

REACTIONS (1)
  - Stress fracture [None]
